FAERS Safety Report 14310490 (Version 1)
Quarter: 2017Q4

REPORT INFORMATION
  Report Type: Spontaneous
  Country: US (occurrence: US)
  Receive Date: 20171220
  Receipt Date: 20171220
  Transmission Date: 20180321
  Serious: No
  Sender: FDA-Public Use
  Company Number: None

PATIENT
  Sex: Male
  Weight: 13.95 kg

DRUGS (1)
  1. OSELTAMIVIR [Suspect]
     Active Substance: OSELTAMIVIR
     Indication: INFLUENZA B VIRUS TEST POSITIVE
     Dosage: ?          QUANTITY:5 ML;?
     Route: 048
     Dates: start: 20171219, end: 20171220

REACTIONS (3)
  - Pain [None]
  - Amnesia [None]
  - Hallucination [None]

NARRATIVE: CASE EVENT DATE: 20171220
